FAERS Safety Report 11461050 (Version 1)
Quarter: 2015Q3

REPORT INFORMATION
  Report Type: Spontaneous
  Country: US (occurrence: US)
  Receive Date: 20150831
  Receipt Date: 20150831
  Transmission Date: 20151125
  Serious: No
  Sender: FDA-Public Use
  Company Number: US-ELI_LILLY_AND_COMPANY-US201004003919

PATIENT
  Age: 65 Year
  Sex: Female

DRUGS (16)
  1. ESTRADIOL. [Concomitant]
     Active Substance: ESTRADIOL
  2. METROGEL [Concomitant]
     Active Substance: METRONIDAZOLE
  3. CYMBALTA [Suspect]
     Active Substance: DULOXETINE HYDROCHLORIDE
     Indication: DEPRESSION
     Dosage: 20 MG, DAILY (1/D)
     Route: 048
     Dates: start: 20100308, end: 201003
  4. PREDNISONE. [Concomitant]
     Active Substance: PREDNISONE
  5. SEROQUEL [Concomitant]
     Active Substance: QUETIAPINE FUMARATE
  6. ALBUTEROL. [Concomitant]
     Active Substance: ALBUTEROL
  7. SINGULAIR [Concomitant]
     Active Substance: MONTELUKAST SODIUM
  8. THEOPHYLLAMINE [Concomitant]
  9. CYMBALTA [Suspect]
     Active Substance: DULOXETINE HYDROCHLORIDE
     Dosage: 20 MG, 2/D
     Route: 048
     Dates: start: 201003, end: 20100403
  10. FOSAMAX [Concomitant]
     Active Substance: ALENDRONATE SODIUM
  11. ATROVENT [Concomitant]
     Active Substance: IPRATROPIUM BROMIDE
  12. CYMBALTA [Suspect]
     Active Substance: DULOXETINE HYDROCHLORIDE
     Dosage: 20 MG, DAILY (1/D)
     Route: 048
     Dates: start: 20100404
  13. ADVAIR HFA [Concomitant]
     Active Substance: FLUTICASONE PROPIONATE\SALMETEROL XINAFOATE
  14. CLARITIN [Concomitant]
     Active Substance: LORATADINE
  15. BUSPAR [Concomitant]
     Active Substance: BUSPIRONE HYDROCHLORIDE
  16. POTASSIUM EFFERVESCENT [Concomitant]

REACTIONS (14)
  - Disturbance in attention [Unknown]
  - Dysuria [Unknown]
  - Vomiting [Recovered/Resolved]
  - Energy increased [Unknown]
  - Abdominal discomfort [Recovered/Resolved]
  - Sensory disturbance [Unknown]
  - Nausea [Recovered/Resolved]
  - Insomnia [Recovered/Resolved]
  - Restlessness [Unknown]
  - Unevaluable event [Unknown]
  - Drug effect incomplete [Recovered/Resolved]
  - Headache [Unknown]
  - Feeling cold [Recovered/Resolved]
  - Diarrhoea [Recovered/Resolved]

NARRATIVE: CASE EVENT DATE: 201003
